FAERS Safety Report 7506562-X (Version None)
Quarter: 2011Q2

REPORT INFORMATION
  Report Type: 
  Country: None (occurrence: None)
  Receive Date: 20110519
  Receipt Date: 20110505
  Transmission Date: 20111010
  Serious: Yes (Life-Threatening, Hospitalization, Other)
  Sender: FDA-Public Use
  Company Number: 2011MA005436

PATIENT
  Age: 24 Year
  Sex: Female

DRUGS (2)
  1. DIAZEPAM [Suspect]
     Indication: SUICIDE ATTEMPT
  2. ETHYLENE GLYCOL [Suspect]

REACTIONS (29)
  - MULTIPLE DRUG OVERDOSE INTENTIONAL [None]
  - CYANOSIS [None]
  - TACHYCARDIA [None]
  - COMA [None]
  - HAEMOGLOBIN INCREASED [None]
  - TOXICOLOGIC TEST ABNORMAL [None]
  - PNEUMONIA ASPIRATION [None]
  - PYREXIA [None]
  - RESPIRATORY DISORDER [None]
  - BRAIN HERNIATION [None]
  - BLOOD SODIUM INCREASED [None]
  - METABOLIC ACIDOSIS [None]
  - POISONING [None]
  - HYPOPNOEA [None]
  - HAEMODIALYSIS [None]
  - SUICIDE ATTEMPT [None]
  - PUPILS UNEQUAL [None]
  - AMNESIA [None]
  - BLOOD PRESSURE DIASTOLIC DECREASED [None]
  - AREFLEXIA [None]
  - WHITE BLOOD CELL COUNT INCREASED [None]
  - INTERNATIONAL NORMALISED RATIO INCREASED [None]
  - LOBAR PNEUMONIA [None]
  - PUPIL FIXED [None]
  - BLOOD CREATINE PHOSPHOKINASE INCREASED [None]
  - BODY TEMPERATURE INCREASED [None]
  - RENAL FAILURE ACUTE [None]
  - BRAIN OEDEMA [None]
  - CEREBRAL INFARCTION [None]
